FAERS Safety Report 20923775 (Version 20)
Quarter: 2025Q1

REPORT INFORMATION
  Report Type: Report from Study
  Country: CA (occurrence: CA)
  Receive Date: 20220607
  Receipt Date: 20250221
  Transmission Date: 20250409
  Serious: Yes (Hospitalization, Other)
  Sender: BIOCON
  Company Number: CA-MYLANLABS-2021M1063461

PATIENT

DRUGS (12)
  1. HULIO [Suspect]
     Active Substance: ADALIMUMAB-FKJP
     Indication: Uveitis
     Dosage: 40 MG, Q2W (EVERY OTHER WEEK)
     Route: 065
  2. HULIO [Suspect]
     Active Substance: ADALIMUMAB-FKJP
     Route: 058
  3. HULIO [Suspect]
     Active Substance: ADALIMUMAB-FKJP
     Route: 065
  4. HULIO [Suspect]
     Active Substance: ADALIMUMAB-FKJP
     Dosage: UNK, Q2W
     Route: 058
     Dates: start: 20210913
  5. HULIO [Suspect]
     Active Substance: ADALIMUMAB-FKJP
     Dosage: UNK UNK, Q2W
     Route: 058
  6. HULIO [Suspect]
     Active Substance: ADALIMUMAB-FKJP
     Dosage: 40 MG, Q2W
     Route: 058
     Dates: start: 20210915
  7. HULIO [Suspect]
     Active Substance: ADALIMUMAB-FKJP
     Dosage: 40 MG, Q2W
     Route: 065
  8. HULIO [Suspect]
     Active Substance: ADALIMUMAB-FKJP
     Route: 065
     Dates: start: 20240210
  9. HULIO [Suspect]
     Active Substance: ADALIMUMAB-FKJP
     Route: 058
  10. HULIO [Suspect]
     Active Substance: ADALIMUMAB-FKJP
     Dosage: 40 MILLIGRAM, Q2W
     Route: 058
     Dates: start: 20240411
  11. HULIO [Suspect]
     Active Substance: ADALIMUMAB-FKJP
     Route: 065
     Dates: start: 20241110
  12. METHOTREXATE [Suspect]
     Active Substance: METHOTREXATE
     Indication: Product used for unknown indication
     Route: 065

REACTIONS (16)
  - Depression [Unknown]
  - Uveitis [Unknown]
  - Pneumonitis [Unknown]
  - Adverse drug reaction [Unknown]
  - Nasopharyngitis [Unknown]
  - COVID-19 [Unknown]
  - Viral infection [Unknown]
  - Therapy interrupted [Unknown]
  - Treatment noncompliance [Unknown]
  - Product packaging issue [Unknown]
  - Circumstance or information capable of leading to medication error [Unknown]
  - Product storage error [Unknown]
  - Product administered at inappropriate site [Unknown]
  - Lack of injection site rotation [Unknown]
  - Inappropriate schedule of product administration [Unknown]
  - Device leakage [Unknown]
